FAERS Safety Report 16168148 (Version 1)
Quarter: 2019Q2

REPORT INFORMATION
  Report Type: Spontaneous
  Country: US (occurrence: US)
  Receive Date: 20190405
  Receipt Date: 20190405
  Transmission Date: 20190711
  Serious: Yes (Other)
  Sender: FDA-Public Use
  Company Number: None

PATIENT
  Age: 3 Year
  Sex: Male
  Weight: 11.7 kg

DRUGS (1)
  1. MIRALAX [Suspect]
     Active Substance: POLYETHYLENE GLYCOL 3350
     Indication: CONSTIPATION
     Dosage: ?          QUANTITY:1 CAP FULL;?
     Route: 048

REACTIONS (9)
  - Hallucination, visual [None]
  - Nervous system disorder [None]
  - Screaming [None]
  - Aggression [None]
  - Violence-related symptom [None]
  - Morbid thoughts [None]
  - Insomnia [None]
  - Agitation [None]
  - Fear [None]
